FAERS Safety Report 21419390 (Version 2)
Quarter: 2022Q4

REPORT INFORMATION
  Report Type: Spontaneous
  Country: US (occurrence: US)
  Receive Date: 20221006
  Receipt Date: 20221021
  Transmission Date: 20230113
  Serious: Yes (Hospitalization)
  Sender: FDA-Public Use
  Company Number: US-TEVA-2022-US-2078749

PATIENT
  Age: 57 Year
  Sex: Female

DRUGS (10)
  1. CARBOPLATIN [Suspect]
     Active Substance: CARBOPLATIN
     Indication: Non-small cell lung cancer metastatic
     Dosage: FOUR CYCLES
     Route: 065
  2. ERLOTINIB [Suspect]
     Active Substance: ERLOTINIB
     Indication: Non-small cell lung cancer metastatic
     Dosage: 25 MILLIGRAM DAILY;
     Route: 065
     Dates: start: 20150405
  3. ERLOTINIB [Suspect]
     Active Substance: ERLOTINIB
     Indication: Non-small cell lung cancer metastatic
     Dosage: DOSE REDUCED
     Route: 065
     Dates: start: 2015
  4. ALIMTA [Suspect]
     Active Substance: PEMETREXED DISODIUM
     Indication: Non-small cell lung cancer metastatic
     Dosage: FOUR CYCLES
     Route: 065
  5. OSIMERTINIB [Suspect]
     Active Substance: OSIMERTINIB
     Indication: Non-small cell lung cancer metastatic
     Route: 065
     Dates: start: 201807, end: 202007
  6. AFATINIB [Suspect]
     Active Substance: AFATINIB
     Indication: Non-small cell lung cancer metastatic
     Route: 065
     Dates: start: 202007
  7. TAGRISSO [Suspect]
     Active Substance: OSIMERTINIB
     Indication: Non-small cell lung cancer metastatic
     Dosage: 80 MILLIGRAM DAILY;
     Route: 065
     Dates: start: 202007
  8. PHENYLBUTYRIC ACID [Concomitant]
     Active Substance: PHENYLBUTYRIC ACID
     Indication: Non-small cell lung cancer metastatic
     Dosage: FIVE TIMES A WEEK, ALONE
     Route: 042
  9. PHENYLBUTYRIC ACID [Concomitant]
     Active Substance: PHENYLBUTYRIC ACID
     Dosage: FIVE TIMES A WEEK, CONTINUED WITH ERLOTINIB
     Route: 042
     Dates: end: 20150710
  10. PHENYLBUTYRIC ACID [Concomitant]
     Active Substance: PHENYLBUTYRIC ACID
     Dosage: CONTINUED ALONG WITH OSIMERTINIB
     Route: 042
     Dates: start: 202007

REACTIONS (2)
  - Drug ineffective [Unknown]
  - Multiple-drug resistance [Unknown]
